FAERS Safety Report 7623210-9 (Version None)
Quarter: 2011Q3

REPORT INFORMATION
  Report Type: 
  Country: None (occurrence: None)
  Receive Date: 20110720
  Receipt Date: 20110714
  Transmission Date: 20111222
  Serious: Yes (Death)
  Sender: FDA-Public Use
  Company Number: PHHY2011US64551

PATIENT
  Sex: Male

DRUGS (1)
  1. NEORAL [Suspect]
     Indication: HEART TRANSPLANT
     Dates: start: 20070701

REACTIONS (1)
  - DEATH [None]
